FAERS Safety Report 22381132 (Version 1)
Quarter: 2023Q2

REPORT INFORMATION
  Report Type: Spontaneous
  Country: TR (occurrence: TR)
  Receive Date: 20230530
  Receipt Date: 20230530
  Transmission Date: 20230722
  Serious: Yes (Other)
  Sender: FDA-Public Use
  Company Number: TR-SUN PHARMACEUTICAL INDUSTRIES LTD-2023R1-391720

PATIENT
  Age: 78 Year
  Sex: Male

DRUGS (4)
  1. FUSIDIC ACID [Suspect]
     Active Substance: FUSIDIC ACID
     Indication: Herpes zoster
     Dosage: THREE TIMES A DAY
     Route: 061
  2. ACETAMINOPHEN [Suspect]
     Active Substance: ACETAMINOPHEN
     Indication: Herpes zoster
     Dosage: 500 MILLIGRAM, TID
     Route: 065
  3. BRIVUDINE [Suspect]
     Active Substance: BRIVUDINE
     Indication: Herpes zoster
     Dosage: 75 MILLIGRAM, QD
     Route: 065
  4. VITAMIN B12 [Suspect]
     Active Substance: CYANOCOBALAMIN
     Indication: Herpes zoster
     Dosage: ONCE A DAY
     Route: 065

REACTIONS (4)
  - Burning sensation [Unknown]
  - Exostosis [Unknown]
  - Pain [Unknown]
  - Pruritus [Unknown]
